FAERS Safety Report 16577073 (Version 1)
Quarter: 2019Q3

REPORT INFORMATION
  Report Type: Spontaneous
  Country: JP (occurrence: JP)
  Receive Date: 20190716
  Receipt Date: 20190716
  Transmission Date: 20191004
  Serious: Yes (Hospitalization)
  Sender: FDA-Public Use
  Company Number: JP-TEVA-2019-JP-1077729

PATIENT
  Age: 84 Year
  Sex: Female
  Weight: 50 kg

DRUGS (2)
  1. TICLOPIDINE HYDROCHLORIDE. [Suspect]
     Active Substance: TICLOPIDINE HYDROCHLORIDE
     Indication: ACUTE MYOCARDIAL INFARCTION
     Route: 065
  2. LEVOBUPIVACAINE [Concomitant]
     Active Substance: LEVOBUPIVACAINE
     Indication: GENERAL ANAESTHESIA
     Dosage: 40 ML OF 0.125% LEVOBUPIVACAINE WAS INJECTED UNDER THE HYPOCHONDRIUM ON EACH SIDE
     Route: 065

REACTIONS (1)
  - Haematoma [Recovering/Resolving]
